FAERS Safety Report 9033255 (Version 1)
Quarter: 2013Q1

REPORT INFORMATION
  Report Type: Spontaneous
  Country: PT (occurrence: PT)
  Receive Date: 20130128
  Receipt Date: 20130128
  Transmission Date: 20140127
  Serious: Yes (Life-Threatening, Disabling)
  Sender: FDA-Public Use
  Company Number: PHHY2013PT007188

PATIENT
  Age: 28 Year
  Sex: Male
  Weight: 60 kg

DRUGS (5)
  1. AMOXICILLIN TRIHYDRATE+POTASSIUM CLAVULANATE SANDOZ [Suspect]
     Indication: INFECTION
     Dosage: 1 DF, BID
     Route: 048
     Dates: start: 20120804
  2. NIMESULIDA BASI [Concomitant]
     Dosage: 100 MG, QD
     Route: 048
     Dates: start: 20120804, end: 20120804
  3. DIAZEPAM [Concomitant]
     Indication: ANXIETY
     Dosage: 5 MG, TID
     Route: 048
  4. ULTRAMIDOL [Concomitant]
     Indication: PAIN
     Dosage: 1 DF, BID
     Route: 048
  5. SEROQUEL [Concomitant]
     Indication: DEPRESSION
     Dosage: 100 MG, QD
     Route: 048

REACTIONS (22)
  - Suicidal ideation [Unknown]
  - Panic disorder [Unknown]
  - Abnormal behaviour [Unknown]
  - Bulimia nervosa [Unknown]
  - Homicidal ideation [Unknown]
  - Acute psychosis [Unknown]
  - Fatigue [Unknown]
  - Abdominal pain [Unknown]
  - Constipation [Unknown]
  - Anger [Unknown]
  - Circadian rhythm sleep disorder [Unknown]
  - Aggression [Unknown]
  - Intentional self-injury [Unknown]
  - Decreased appetite [Unknown]
  - Fear [Unknown]
  - Breast pain [Unknown]
  - Breast mass [Unknown]
  - Thirst [Unknown]
  - Toxicity to various agents [Unknown]
  - Hyperhidrosis [Unknown]
  - Vomiting [Unknown]
  - Nausea [Unknown]
